FAERS Safety Report 20566268 (Version 2)
Quarter: 2022Q1

REPORT INFORMATION
  Report Type: Report from Study
  Country: US (occurrence: US)
  Receive Date: 20220308
  Receipt Date: 20220309
  Transmission Date: 20220423
  Serious: No
  Sender: FDA-Public Use
  Company Number: US-NOVARTISTESTPH-NVSC2022US054024

PATIENT
  Sex: Female

DRUGS (1)
  1. COSENTYX [Suspect]
     Active Substance: SECUKINUMAB
     Indication: Product used for unknown indication
     Dosage: 300 MG, UNKNOWN
     Route: 058

REACTIONS (7)
  - Pruritus [Unknown]
  - Condition aggravated [Unknown]
  - Hair growth abnormal [Unknown]
  - COVID-19 [Unknown]
  - Discomfort [Unknown]
  - Road traffic accident [Unknown]
  - Scratch [Unknown]
